FAERS Safety Report 21917334 (Version 2)
Quarter: 2023Q1

REPORT INFORMATION
  Report Type: Spontaneous
  Country: CO (occurrence: CO)
  Receive Date: 20230126
  Receipt Date: 20230308
  Transmission Date: 20230417
  Serious: Yes (Hospitalization)
  Sender: FDA-Public Use
  Company Number: CO-PFIZER INC-PV202200086794

PATIENT
  Age: 37 Year
  Sex: Female

DRUGS (1)
  1. ENBREL [Suspect]
     Active Substance: ETANERCEPT
     Indication: Rheumatoid arthritis
     Dosage: 50 MG, WEEKLY
     Route: 058
     Dates: start: 2018, end: 202208

REACTIONS (4)
  - Gait disturbance [Unknown]
  - Pneumonia [Unknown]
  - Arthralgia [Unknown]
  - Joint noise [Unknown]

NARRATIVE: CASE EVENT DATE: 20221016
